FAERS Safety Report 19039496 (Version 1)
Quarter: 2021Q1

REPORT INFORMATION
  Report Type: Spontaneous
  Country: US (occurrence: US)
  Receive Date: 20210322
  Receipt Date: 20210322
  Transmission Date: 20210420
  Serious: Yes (Hospitalization, Other)
  Sender: FDA-Public Use
  Company Number: US-CIPLA LTD.-2021US02096

PATIENT

DRUGS (7)
  1. TESTOSTERONE. [Suspect]
     Active Substance: TESTOSTERONE
     Indication: WEIGHT LOSS DIET
     Dosage: UNK
     Route: 065
  2. L?CARNITINE [LEVOCARNITINE] [Suspect]
     Active Substance: LEVOCARNITINE
     Indication: WEIGHT LOSS DIET
     Dosage: UNK
     Route: 065
  3. YOHIMBINE [Suspect]
     Active Substance: YOHIMBINE
     Indication: WEIGHT LOSS DIET
     Dosage: UNK
     Route: 065
  4. CREATINE [Suspect]
     Active Substance: CREATINE
     Indication: WEIGHT LOSS DIET
     Dosage: UNK
     Route: 065
  5. CAFFEINE. [Suspect]
     Active Substance: CAFFEINE
     Indication: WEIGHT LOSS DIET
     Dosage: UNK
     Route: 065
  6. GARCINIA CAMBOGIA [GARCINIA GUMMI?GUTTA] [Suspect]
     Active Substance: DIETARY SUPPLEMENT
     Indication: WEIGHT LOSS DIET
     Dosage: UNK
     Route: 065
  7. LINOLEIC ACID [Suspect]
     Active Substance: LINOLEIC ACID
     Indication: WEIGHT LOSS DIET
     Dosage: UNK
     Route: 065

REACTIONS (8)
  - Tubulointerstitial nephritis [Not Recovered/Not Resolved]
  - Thrombotic microangiopathy [Unknown]
  - Pulmonary haemorrhage [Unknown]
  - Gastroenteritis [Unknown]
  - Nausea [Unknown]
  - Pulmonary oedema [Recovering/Resolving]
  - Renal failure [Not Recovered/Not Resolved]
  - Malignant hypertension [Unknown]
